FAERS Safety Report 24254897 (Version 1)
Quarter: 2024Q3

REPORT INFORMATION
  Report Type: Spontaneous
  Country: DE (occurrence: DE)
  Receive Date: 20240827
  Receipt Date: 20240827
  Transmission Date: 20241016
  Serious: Yes (Other)
  Sender: MYLAN
  Company Number: None

PATIENT
  Sex: Female

DRUGS (2)
  1. CANDESARTAN [Interacting]
     Active Substance: CANDESARTAN
     Indication: Hypertension
     Dosage: 24 MILLIGRAM, QD (CURRENTLY 8 MG IN THE MORNING AND 16 MG IN THE EVENING)
     Route: 065
  2. LACTULOSE [Interacting]
     Active Substance: LACTULOSE
     Indication: Dyspepsia
     Dosage: 15 MILLILITER (MOSTLY 15 ML )
     Route: 065

REACTIONS (2)
  - Blood pressure increased [Not Recovered/Not Resolved]
  - Drug interaction [Not Recovered/Not Resolved]
